FAERS Safety Report 10450977 (Version 4)
Quarter: 2018Q4

REPORT INFORMATION
  Report Type: Spontaneous
  Country: US (occurrence: US)
  Receive Date: 20140912
  Receipt Date: 20181219
  Transmission Date: 20190204
  Serious: Yes (Death, Hospitalization, Other)
  Sender: FDA-Public Use
  Company Number: US-PFIZER INC-2014250742

PATIENT
  Age: 88 Year
  Sex: Male

DRUGS (9)
  1. SOMAVERT [Suspect]
     Active Substance: PEGVISOMANT
     Indication: GIGANTISM
     Dosage: 15 MG, DAILY
     Route: 058
     Dates: start: 20090206
  2. ATORVASTATIN [Concomitant]
     Active Substance: ATORVASTATIN
     Dosage: 10 MG, UNK
  3. KLOR-CON M20 [Concomitant]
     Active Substance: POTASSIUM CHLORIDE
     Dosage: 20 MEQ, UNK
  4. SOMAVERT [Suspect]
     Active Substance: PEGVISOMANT
     Indication: ACROMEGALY
     Dosage: 10 MG, 1X/DAY
     Route: 058
  5. ELIQUIS [Concomitant]
     Active Substance: APIXABAN
     Dosage: 2.5 MG, UNK
  6. LEVOFLOXACIN. [Concomitant]
     Active Substance: LEVOFLOXACIN
     Dosage: 500 MG, UNK
  7. METOPROLOL TARTRATE. [Concomitant]
     Active Substance: METOPROLOL TARTRATE
     Dosage: 25 MG, UNK
  8. BUMETANIDE. [Concomitant]
     Active Substance: BUMETANIDE
     Dosage: 1 MG, UNK
  9. LISINOPRIL. [Concomitant]
     Active Substance: LISINOPRIL
     Dosage: 10 MG, UNK

REACTIONS (7)
  - Atrial fibrillation [Recovered/Resolved]
  - Lower limb fracture [Unknown]
  - Fall [Unknown]
  - Neoplasm malignant [Fatal]
  - Heart rate increased [Recovered/Resolved]
  - Pneumonia [Recovered/Resolved]
  - Dyspnoea [Unknown]
